FAERS Safety Report 5379333-0 (Version None)
Quarter: 2007Q3

REPORT INFORMATION
  Report Type: 
  Country: None (occurrence: None)
  Receive Date: 20070705
  Receipt Date: 20070626
  Transmission Date: 20080115
  Serious: Yes (Other)
  Sender: FDA-Public Use
  Company Number: GB-PFIZER INC-2007053078

PATIENT
  Age: 18 Year
  Sex: Female

DRUGS (4)
  1. MISOPROSTOL [Suspect]
     Indication: ABORTION INDUCED
     Route: 048
     Dates: start: 20070601, end: 20070604
  2. CO-DYDRAMOL [Concomitant]
     Route: 048
     Dates: start: 20070603, end: 20070604
  3. MIFEPRISTONE [Concomitant]
     Indication: ABORTION INDUCED
     Route: 048
     Dates: start: 20070530, end: 20070530
  4. SYNTOCINON [Concomitant]
     Route: 042

REACTIONS (3)
  - LOSS OF CONSCIOUSNESS [None]
  - TONIC CLONIC MOVEMENTS [None]
  - URINARY INCONTINENCE [None]
